FAERS Safety Report 8882156 (Version 5)
Quarter: 2013Q2

REPORT INFORMATION
  Report Type: Report from Study
  Country: CA (occurrence: CA)
  Receive Date: 20121105
  Receipt Date: 20130513
  Transmission Date: 20140414
  Serious: Yes (Death, Hospitalization, Other)
  Sender: FDA-Public Use
  Company Number: CA-BRISTOL-MYERS SQUIBB COMPANY-17069881

PATIENT
  Age: 56 Year
  Sex: Male
  Weight: 93.1 kg

DRUGS (3)
  1. LOMUSTINE [Suspect]
     Indication: GLIOBLASTOMA
     Dosage: 01OCT2012-01OCT12(1D)?DRUG HELD ON 25OCT12
     Route: 048
     Dates: start: 20121001
  2. ZOPICLONE [Concomitant]
     Dates: start: 20121005
  3. DEXAMETHASONE [Concomitant]
     Dates: start: 201112

REACTIONS (3)
  - Malignant neoplasm progression [Fatal]
  - Insomnia [Recovered/Resolved]
  - Agitation [Recovered/Resolved]
